FAERS Safety Report 5598480-1 (Version None)
Quarter: 2008Q1

REPORT INFORMATION
  Report Type: 
  Country: None (occurrence: None)
  Receive Date: 20080122
  Receipt Date: 20080110
  Transmission Date: 20080703
  Serious: Yes (Hospitalization, Disabling, Other)
  Sender: FDA-Public Use
  Company Number: US-MERCK-0705USA01446

PATIENT
  Age: 77 Year
  Sex: Female

DRUGS (5)
  1. FOSAMAX [Suspect]
     Indication: FALL
     Route: 048
     Dates: start: 20031201, end: 20050101
  2. THEOPHYLLINE [Concomitant]
     Route: 065
  3. PREDNISONE [Suspect]
     Indication: ASTHMA
     Route: 065
     Dates: start: 19770101
  4. SINGULAIR [Concomitant]
     Route: 065
  5. ALBUTEROL [Concomitant]
     Route: 065

REACTIONS (11)
  - ASTHMA [None]
  - BRONCHITIS [None]
  - DIABETES MELLITUS [None]
  - EXOSTOSIS [None]
  - FAECES DISCOLOURED [None]
  - HERPES ZOSTER [None]
  - LEUKOCYTOSIS [None]
  - MUSCULAR WEAKNESS [None]
  - MYALGIA [None]
  - OSTEOMYELITIS [None]
  - OSTEONECROSIS [None]
